FAERS Safety Report 15023232 (Version 1)
Quarter: 2018Q2

REPORT INFORMATION
  Report Type: Spontaneous
  Country: US (occurrence: US)
  Receive Date: 20180602
  Receipt Date: 20180602
  Transmission Date: 20180711
  Serious: Yes (Other)
  Sender: FDA-Public Use
  Company Number: None

PATIENT
  Age: 56 Year
  Sex: Female
  Weight: 112.5 kg

DRUGS (1)
  1. BASAGLAR [Suspect]
     Active Substance: INSULIN GLARGINE
     Indication: DIABETES MELLITUS
     Dosage: ?          QUANTITY:72 DF DOSAGE FORM;?
     Route: 058

REACTIONS (6)
  - Joint swelling [None]
  - Arthralgia [None]
  - Myalgia [None]
  - Drug ineffective [None]
  - Muscle swelling [None]
  - Product substitution issue [None]

NARRATIVE: CASE EVENT DATE: 20170622
